FAERS Safety Report 8385999-3 (Version None)
Quarter: 2012Q2

REPORT INFORMATION
  Report Type: 
  Country: None (occurrence: None)
  Receive Date: 20120525
  Receipt Date: 20120516
  Transmission Date: 20120825
  Serious: Yes (Other)
  Sender: FDA-Public Use
  Company Number: DE-UCBSA-057596

PATIENT
  Age: 47 Year
  Sex: Female

DRUGS (2)
  1. VIMPAT [Suspect]
     Indication: EPILEPSY
     Dosage: DAILY DOSE: 700 MG
  2. KEPPRA [Suspect]
     Indication: EPILEPSY
     Dosage: DAILY DOSE: 1500 MG

REACTIONS (1)
  - CONVULSION [None]
